FAERS Safety Report 5865183-5 (Version None)
Quarter: 2008Q3

REPORT INFORMATION
  Report Type: 
  Country: None (occurrence: None)
  Receive Date: 20080829
  Receipt Date: 20080821
  Transmission Date: 20090109
  Serious: Yes (Death)
  Sender: FDA-Public Use
  Company Number: A0745253A

PATIENT
  Age: 71 Year
  Sex: Male

DRUGS (3)
  1. ALKERAN [Suspect]
     Indication: MULTIPLE MYELOMA
     Route: 065
  2. THALIDOMIDE [Suspect]
     Indication: MULTIPLE MYELOMA
     Dosage: 100MG UNKNOWN
     Route: 048
     Dates: start: 20071201
  3. PREDNISONE TAB [Suspect]

REACTIONS (1)
  - MULTIPLE MYELOMA [None]
